FAERS Safety Report 16979135 (Version 1)
Quarter: 2019Q4

REPORT INFORMATION
  Report Type: Spontaneous
  Country: US (occurrence: US)
  Receive Date: 20191031
  Receipt Date: 20191031
  Transmission Date: 20200122
  Serious: No
  Sender: FDA-Public Use
  Company Number: US-CIPLA LTD.-2019US06278

PATIENT

DRUGS (3)
  1. GABAPENTIN. [Suspect]
     Active Substance: GABAPENTIN
     Indication: NEURALGIA
     Dosage: UNK (UNKNOWN MANUFACTURER)
     Route: 065
  2. GABAPENTIN. [Suspect]
     Active Substance: GABAPENTIN
     Dosage: 400 MILLIGRAM, TID
     Route: 048
  3. GABAPENTIN. [Suspect]
     Active Substance: GABAPENTIN
     Dosage: 400 MILLIGRAM, QID
     Route: 048
     Dates: start: 2019

REACTIONS (11)
  - Product use in unapproved indication [Unknown]
  - Bone pain [Unknown]
  - Dyspepsia [Unknown]
  - Mood swings [Unknown]
  - Arthralgia [Unknown]
  - Headache [Unknown]
  - Malaise [Unknown]
  - Peripheral swelling [Unknown]
  - Swelling face [Unknown]
  - Inappropriate schedule of product administration [Unknown]
  - Off label use [Unknown]
